FAERS Safety Report 19671038 (Version 1)
Quarter: 2021Q3

REPORT INFORMATION
  Report Type: Spontaneous
  Country: BR (occurrence: BR)
  Receive Date: 20210806
  Receipt Date: 20210806
  Transmission Date: 20211014
  Serious: Yes (Other)
  Sender: FDA-Public Use
  Company Number: BR-ALLERGAN-2121927US

PATIENT
  Age: 20 Year
  Sex: Female

DRUGS (1)
  1. OZURDEX [Suspect]
     Active Substance: DEXAMETHASONE
     Indication: UVEITIS
     Dosage: UNK
     Route: 031
     Dates: start: 20210601, end: 20210601

REACTIONS (3)
  - Product administered at inappropriate site [Unknown]
  - Complication of device insertion [Unknown]
  - Device malfunction [Unknown]

NARRATIVE: CASE EVENT DATE: 20210601
